FAERS Safety Report 7516370-1 (Version None)
Quarter: 2011Q2

REPORT INFORMATION
  Report Type: 
  Country: None (occurrence: None)
  Receive Date: 20110601
  Receipt Date: 20110518
  Transmission Date: 20111010
  Serious: Yes (Hospitalization)
  Sender: FDA-Public Use
  Company Number: AU-ELI_LILLY_AND_COMPANY-AU201105004938

PATIENT
  Age: 35 Year
  Sex: Male
  Weight: 66 kg

DRUGS (1)
  1. ZYPREXA RELPREVV [Suspect]
     Indication: SCHIZOPHRENIA
     Dosage: 300 MG, UNKNOWN
     Route: 030

REACTIONS (4)
  - MUSCULAR WEAKNESS [None]
  - FEELING OF BODY TEMPERATURE CHANGE [None]
  - SEDATION [None]
  - FATIGUE [None]
